FAERS Safety Report 5383139-6 (Version None)
Quarter: 2007Q3

REPORT INFORMATION
  Report Type: 
  Country: None (occurrence: None)
  Receive Date: 20070710
  Receipt Date: 20070702
  Transmission Date: 20080115
  Serious: Yes (Other)
  Sender: FDA-Public Use
  Company Number: US-ELI_LILLY_AND_COMPANY-US200707000724

PATIENT
  Age: 61 Year
  Sex: Female
  Weight: 83.446 kg

DRUGS (9)
  1. BYETTA [Suspect]
     Indication: TYPE 2 DIABETES MELLITUS
     Dosage: 5 UG, 2/D
     Route: 058
     Dates: start: 20070618, end: 20070623
  2. SYNTHROID [Concomitant]
     Indication: THYROIDECTOMY
  3. BENICAR [Concomitant]
     Indication: HYPERTENSION
  4. CARTIA XT [Concomitant]
     Indication: HYPERTENSION
     Dosage: 240 MG, DAILY (1/D)
  5. PRAVACHOL [Concomitant]
     Indication: HYPERCHOLESTEROLAEMIA
  6. DIURETICS [Concomitant]
     Indication: HYPERTENSION
  7. FOSAMAX [Concomitant]
     Indication: OSTEOPOROSIS
     Dosage: UNK, WEEKLY (1/W)
  8. OTHER RESPIRATORY SYSTEM PRODUCTS [Concomitant]
     Indication: BRONCHITIS
     Route: 055
  9. OTHER NASAL PREPARATIONS [Concomitant]
     Indication: BRONCHITIS
     Route: 045

REACTIONS (8)
  - COLD SWEAT [None]
  - FEELING HOT [None]
  - HEADACHE [None]
  - HYPERHIDROSIS [None]
  - HYPOGLYCAEMIC UNCONSCIOUSNESS [None]
  - NAUSEA [None]
  - SOMNOLENCE [None]
  - VOMITING [None]
